FAERS Safety Report 7591631-9 (Version None)
Quarter: 2011Q3

REPORT INFORMATION
  Report Type: 
  Country: None (occurrence: None)
  Receive Date: 20110706
  Receipt Date: 20090728
  Transmission Date: 20111222
  Serious: Yes (Death, Other)
  Sender: FDA-Public Use
  Company Number: US-BAYER-200929366NA

PATIENT
  Age: 74 Year
  Sex: Female
  Weight: 68 kg

DRUGS (14)
  1. TRASYLOL [Suspect]
     Dosage: 100 BOLUS
     Route: 042
     Dates: start: 20020523, end: 20020523
  2. ACETYLSALICYLIC ACID SRT [Concomitant]
  3. NEXIUM [Concomitant]
  4. EPINEPHRINE [Concomitant]
     Dosage: UNK
     Route: 042
  5. RED BLOOD CELLS [Concomitant]
     Dosage: 2 U, ONCE
     Route: 042
     Dates: start: 20020523
  6. PRINIVIL [Concomitant]
  7. ZOCOR [Concomitant]
  8. HEPARIN [Concomitant]
     Dosage: UNK
     Route: 042
     Dates: start: 20020523
  9. PROTAMINE SULFATE [Concomitant]
     Dosage: UNK
     Route: 042
     Dates: start: 20020523
  10. PLATELETS [Concomitant]
     Dosage: UNK
     Route: 042
     Dates: start: 20020523
  11. TRASYLOL [Suspect]
     Indication: AORTIC VALVE REPLACEMENT
     Dosage: 1 ML, ONCE TEST DOSE
     Route: 042
     Dates: start: 20020523, end: 20020523
  12. TRASYLOL [Suspect]
     Dosage: 25 ML/HR INFUSION
     Route: 042
     Dates: start: 20020523, end: 20020523
  13. CONTRAST MEDIA [Concomitant]
     Dosage: UNK
     Dates: start: 20020523
  14. FRESH FROZEN PLASMA [Concomitant]
     Dosage: 2 U, ONCE
     Route: 042
     Dates: start: 20020523

REACTIONS (10)
  - RENAL FAILURE [None]
  - INJURY [None]
  - ANXIETY [None]
  - DEATH [None]
  - PAIN [None]
  - RENAL INJURY [None]
  - FEAR [None]
  - ANHEDONIA [None]
  - UNEVALUABLE EVENT [None]
  - DEPRESSION [None]
